FAERS Safety Report 9452374 (Version 3)
Quarter: 2014Q1

REPORT INFORMATION
  Report Type: Spontaneous
  Country: US (occurrence: US)
  Receive Date: 20130812
  Receipt Date: 20140219
  Transmission Date: 20141002
  Serious: Yes (Death, Congenital Anomaly, Other)
  Sender: FDA-Public Use
  Company Number: US-JNJFOC-20130802232

PATIENT
  Sex: 0

DRUGS (4)
  1. PREZISTA [Suspect]
     Indication: PRODUCT USED FOR UNKNOWN INDICATION
     Route: 064
  2. NORVIR [Suspect]
     Indication: PRODUCT USED FOR UNKNOWN INDICATION
     Route: 064
  3. RETROVIR [Suspect]
     Indication: PRODUCT USED FOR UNKNOWN INDICATION
     Route: 064
  4. TRUVADA [Suspect]
     Indication: PRODUCT USED FOR UNKNOWN INDICATION
     Route: 064

REACTIONS (6)
  - Congenital aortic anomaly [Fatal]
  - Ventricular septal defect [Fatal]
  - Pulmonary hypoplasia [Fatal]
  - Congenital foot malformation [Unknown]
  - Intraventricular haemorrhage [Unknown]
  - Foetal exposure during pregnancy [Unknown]
